FAERS Safety Report 5013947-2 (Version None)
Quarter: 2006Q2

REPORT INFORMATION
  Report Type: 
  Country: None (occurrence: None)
  Receive Date: 20060525
  Receipt Date: 20060511
  Transmission Date: 20061013
  Serious: Yes (Hospitalization)
  Sender: FDA-Public Use
  Company Number: 223885

PATIENT
  Age: 55 Year
  Sex: Male
  Weight: 70 kg

DRUGS (4)
  1. AVASTIN [Suspect]
     Indication: COLORECTAL CANCER METASTATIC
     Dosage: 5 MG/KG, Q2W, INTRAVENOUS
     Route: 042
     Dates: start: 20060105, end: 20060314
  2. CAPECITABINE (CAPECITABINE) [Suspect]
     Indication: COLORECTAL CANCER METASTATIC
     Dosage: 3000 MG/M2, Q2W, ORAL
     Route: 048
     Dates: start: 20060105, end: 20060320
  3. OXALIPLATIN (OXALIPLATIN) [Suspect]
     Indication: COLORECTAL CANCER METASTATIC
     Dosage: 100 MG/M2, Q2W, INTRAVENOUS
     Route: 042
     Dates: start: 20060105, end: 20060315
  4. OXYCONTIN [Suspect]

REACTIONS (2)
  - DIARRHOEA [None]
  - HAEMORRHOIDS [None]
